FAERS Safety Report 25679961 (Version 1)
Quarter: 2025Q3

REPORT INFORMATION
  Report Type: Spontaneous
  Country: US (occurrence: US)
  Receive Date: 20250814
  Receipt Date: 20250814
  Transmission Date: 20251020
  Serious: Yes (Other)
  Sender: INSYS
  Company Number: US-INSYS Therapeutics, Inc-INS201605-BEN202506-000006

PATIENT
  Age: 49 Year
  Sex: Female
  Weight: 45.35 kg

DRUGS (3)
  1. SYNDROS [Suspect]
     Active Substance: DRONABINOL
     Indication: Decreased appetite
     Dosage: LIQUID SYNDROS
     Route: 065
  2. SYNDROS [Suspect]
     Active Substance: DRONABINOL
     Route: 048
     Dates: start: 202106
  3. XANAX [Concomitant]
     Active Substance: ALPRAZOLAM
     Indication: Product used for unknown indication

REACTIONS (6)
  - Seizure [Recovered/Resolved]
  - Anger [Recovered/Resolved]
  - Irritability [Recovered/Resolved]
  - Loss of personal independence in daily activities [Recovered/Resolved]
  - Drug withdrawal syndrome [Unknown]
  - Product use in unapproved indication [Unknown]
